FAERS Safety Report 18772440 (Version 1)
Quarter: 2021Q1

REPORT INFORMATION
  Report Type: Spontaneous
  Country: US (occurrence: US)
  Receive Date: 20210121
  Receipt Date: 20210121
  Transmission Date: 20210419
  Serious: Yes (Death)
  Sender: FDA-Public Use
  Company Number: None

PATIENT
  Age: 91 Year
  Sex: Female
  Weight: 69.1 kg

DRUGS (8)
  1. ACETAMINOPHEN. [Concomitant]
     Active Substance: ACETAMINOPHEN
     Dates: start: 20200928, end: 20200930
  2. ATORVASTATIN [Concomitant]
     Active Substance: ATORVASTATIN
     Dates: start: 20200928, end: 20200930
  3. APIXABAN [Concomitant]
     Active Substance: APIXABAN
     Dates: start: 20200928, end: 20201001
  4. REMDESIVIR. [Suspect]
     Active Substance: REMDESIVIR
     Indication: COVID-19
     Route: 042
     Dates: start: 20200929, end: 20200930
  5. DIGOXIN. [Concomitant]
     Active Substance: DIGOXIN
     Dates: start: 20200928, end: 20201002
  6. LEVOTHYROXINE. [Concomitant]
     Active Substance: LEVOTHYROXINE
     Dates: start: 20200928, end: 20201002
  7. AZITHROMYCIN ANHYDROUS. [Concomitant]
     Active Substance: AZITHROMYCIN ANHYDROUS
     Dates: start: 20200928, end: 20200930
  8. DEXAMETHASONE. [Concomitant]
     Active Substance: DEXAMETHASONE
     Dates: start: 20200929, end: 20201002

REACTIONS (3)
  - Respiratory distress [None]
  - Liver function test increased [None]
  - Drug-induced liver injury [None]

NARRATIVE: CASE EVENT DATE: 20200930
